FAERS Safety Report 4466926-8 (Version None)
Quarter: 2004Q3

REPORT INFORMATION
  Report Type: 
  Country: None (occurrence: None)
  Receive Date: 20040930
  Receipt Date: 20040916
  Transmission Date: 20050211
  Serious: Yes (Hospitalization)
  Sender: FDA-Public Use
  Company Number: 202421

PATIENT
  Age: 26 Year
  Sex: Male
  Weight: 136.0791 kg

DRUGS (2)
  1. AVONEX [Suspect]
     Indication: MULTIPLE SCLEROSIS
     Dosage: 30 MCG QW IM
     Route: 030
     Dates: start: 20000202, end: 20020401
  2. AVONEX [Suspect]
     Indication: MULTIPLE SCLEROSIS
     Dosage: 15 MCG QW IM
     Route: 030
     Dates: start: 20040709

REACTIONS (6)
  - CONDITION AGGRAVATED [None]
  - GALLBLADDER DISORDER [None]
  - HOT FLUSH [None]
  - HYPERHIDROSIS [None]
  - HYPOAESTHESIA [None]
  - MULTIPLE SCLEROSIS [None]
